FAERS Safety Report 5319901-5 (Version None)
Quarter: 2007Q2

REPORT INFORMATION
  Report Type: 
  Country: None (occurrence: None)
  Receive Date: 20070503
  Receipt Date: 20070424
  Transmission Date: 20071010
  Serious: Yes (Other)
  Sender: FDA-Public Use
  Company Number: 2007SP007892

PATIENT
  Age: 39 Year
  Sex: Male

DRUGS (2)
  1. PEG-INTRON [Suspect]
     Indication: HEPATITIS C
     Dosage: SC
     Route: 058
     Dates: start: 20061201
  2. REBETOL [Suspect]
     Indication: HEPATITIS C
     Dosage: PO
     Route: 048
     Dates: start: 20061201

REACTIONS (12)
  - DYSPEPSIA [None]
  - EMOTIONAL DISTRESS [None]
  - FEAR [None]
  - FOOD AVERSION [None]
  - HAEMATEMESIS [None]
  - HAEMATOCHEZIA [None]
  - HOT FLUSH [None]
  - INJECTION SITE ERYTHEMA [None]
  - IRRITABILITY [None]
  - MOOD SWINGS [None]
  - PHARYNGITIS STREPTOCOCCAL [None]
  - VOMITING PROJECTILE [None]
